FAERS Safety Report 5258588-7 (Version None)
Quarter: 2007Q1

REPORT INFORMATION
  Report Type: 
  Country: None (occurrence: None)
  Receive Date: 20070305
  Receipt Date: 20070228
  Transmission Date: 20070707
  Serious: Yes (Other)
  Sender: FDA-Public Use
  Company Number: SP01147

PATIENT
  Sex: Male

DRUGS (1)
  1. COLAZAL [Suspect]
     Indication: COLITIS ULCERATIVE

REACTIONS (1)
  - NEUROPATHY PERIPHERAL [None]
